FAERS Safety Report 4558271-7 (Version None)
Quarter: 2005Q1

REPORT INFORMATION
  Report Type: 
  Country: None (occurrence: None)
  Receive Date: 20050103
  Receipt Date: 20041020
  Transmission Date: 20050727
  Serious: Yes (Other)
  Sender: FDA-Public Use
  Company Number: 2004UW21911

PATIENT
  Age: 55 Year
  Sex: Female
  Weight: 56.699 kg

DRUGS (2)
  1. CRESTOR [Suspect]
     Indication: BLOOD CHOLESTEROL INCREASED
  2. PREMPRO [Concomitant]

REACTIONS (1)
  - ALOPECIA [None]
